FAERS Safety Report 14882043 (Version 1)
Quarter: 2018Q2

REPORT INFORMATION
  Report Type: Spontaneous
  Country: US (occurrence: US)
  Receive Date: 20180511
  Receipt Date: 20180511
  Transmission Date: 20180711
  Serious: No
  Sender: FDA-Public Use
  Company Number: US-009507513-1804USA009515

PATIENT
  Sex: Female

DRUGS (4)
  1. CELEBREX [Concomitant]
     Active Substance: CELECOXIB
  2. STROMECTOL [Suspect]
     Active Substance: IVERMECTIN
     Dosage: SIX 3 MG TABLETS / TWICE, SIX DAYS AFTER THE FIRST ADMINISTRATION
     Route: 048
  3. LEVOTHYROXINE SODIUM. [Concomitant]
     Active Substance: LEVOTHYROXINE SODIUM
  4. STROMECTOL [Suspect]
     Active Substance: IVERMECTIN
     Indication: ACARODERMATITIS
     Dosage: SIX 3 MG TABLETS / TWICE
     Route: 048

REACTIONS (1)
  - Drug ineffective for unapproved indication [Unknown]
